FAERS Safety Report 8950205 (Version 1)
Quarter: 2012Q4

REPORT INFORMATION
  Report Type: 
  Country: US (occurrence: US)
  Receive Date: 20121205
  Receipt Date: 20121205
  Transmission Date: 20130627
  Serious: Yes (Death, Other)
  Sender: FDA-Public Use
  Company Number: US-ASTELLAS-2010002622

PATIENT
  Sex: Female

DRUGS (1)
  1. TARCEVA [Suspect]
     Indication: LUNG NEOPLASM MALIGNANT
     Dosage: UNK
     Route: 048

REACTIONS (9)
  - Cardiac failure congestive [Fatal]
  - Pericardial effusion [Unknown]
  - Pericardial haemorrhage [Unknown]
  - Anaemia [Unknown]
  - Hypernatraemia [Unknown]
  - Leukocytosis [Unknown]
  - Thrombosis [Unknown]
  - Troponin increased [Unknown]
  - Malignant neoplasm progression [Fatal]
